FAERS Safety Report 4915520-0 (Version None)
Quarter: 2006Q1

REPORT INFORMATION
  Report Type: 
  Country: None (occurrence: None)
  Receive Date: 20060217
  Receipt Date: 20031016
  Transmission Date: 20060701
  Serious: Yes (Hospitalization)
  Sender: FDA-Public Use
  Company Number: NZ-MERCK-0310NZL00031

PATIENT
  Age: 53 Year
  Sex: Male
  Weight: 89 kg

DRUGS (13)
  1. VIOXX [Suspect]
     Indication: OSTEOARTHRITIS
     Route: 048
     Dates: start: 20020527, end: 20030903
  2. OMEPRAZOLE [Concomitant]
     Route: 065
  3. ACETAMINOPHEN [Concomitant]
     Route: 065
  4. CIPROFLOXACIN HYDROCHLORIDE [Concomitant]
     Route: 065
  5. TRIAMCINOLONE [Concomitant]
     Route: 065
     Dates: start: 20021007
  6. ACETAMINOPHEN AND PROPOXYPHENE HYDROCHLORIDE [Concomitant]
     Route: 065
  7. ATENOLOL [Concomitant]
     Route: 065
  8. BECLOMETHASONE DIPROPIONATE [Concomitant]
     Route: 065
  9. INFLUENZA VIRUS VACCINE (UNSPECIFIED) [Concomitant]
     Route: 065
     Dates: start: 20030327
  10. LEVOCABASTINE HYDROCHLORIDE [Concomitant]
     Route: 065
  11. LORATADINE [Concomitant]
     Route: 065
  12. PROCHLORPERAZINE [Concomitant]
     Route: 065
  13. TRAMADOL HYDROCHLORIDE [Concomitant]
     Route: 065

REACTIONS (1)
  - PULMONARY EMBOLISM [None]
